FAERS Safety Report 5903515-X (Version None)
Quarter: 2008Q3

REPORT INFORMATION
  Report Type: 
  Country: None (occurrence: None)
  Receive Date: 20080930
  Receipt Date: 20080929
  Transmission Date: 20090109
  Serious: Yes (Hospitalization)
  Sender: FDA-Public Use
  Company Number: ID-RB-004086-08

PATIENT
  Age: 10 Month

DRUGS (1)
  1. SUBUTEX [Suspect]
     Route: 065
     Dates: start: 20080906, end: 20080906

REACTIONS (2)
  - ACCIDENTAL DRUG INTAKE BY CHILD [None]
  - CONSTIPATION [None]
